FAERS Safety Report 6279858-X (Version None)
Quarter: 2009Q3

REPORT INFORMATION
  Report Type: 
  Country: None (occurrence: None)
  Receive Date: 20090723
  Receipt Date: 20090722
  Transmission Date: 20100115
  Serious: Yes (Other)
  Sender: FDA-Public Use
  Company Number: US-TEVA-197032USA

PATIENT
  Sex: Female

DRUGS (16)
  1. METRONIDAZOLE [Suspect]
     Indication: HAEMATOCHEZIA
     Route: 048
     Dates: start: 20090326, end: 20090401
  2. FUROSEMIDE [Concomitant]
     Route: 048
  3. ENALAPRIL MALEATE [Concomitant]
     Route: 048
  4. SULFASALAZINE [Concomitant]
  5. VALACYCLOVIR [Concomitant]
  6. DIGOXIN [Concomitant]
     Route: 048
  7. PREDNISONE TAB [Concomitant]
     Route: 048
  8. VERAPAMIL [Concomitant]
     Route: 048
  9. SULFADIAZINE [Concomitant]
  10. OMEPRAZOLE [Concomitant]
     Route: 048
  11. POTASSIUM CHLORIDE [Concomitant]
     Route: 048
  12. MULTIVITAMIN                       /00831701/ [Concomitant]
     Route: 048
  13. VITACAL                            /01535001/ [Concomitant]
     Route: 048
  14. ACETYLSALICYLIC ACID [Concomitant]
     Route: 048
  15. METAXALONE [Concomitant]
  16. ETIDRONATE DISODIUM [Concomitant]

REACTIONS (1)
  - STEVENS-JOHNSON SYNDROME [None]
